FAERS Safety Report 15916514 (Version 4)
Quarter: 2019Q1

REPORT INFORMATION
  Report Type: Report from Study
  Country: CA (occurrence: CA)
  Receive Date: 20190204
  Receipt Date: 20190305
  Transmission Date: 20190417
  Serious: Yes (Hospitalization)
  Sender: FDA-Public Use
  Company Number: CA-MYLANLABS-2019M1002594

PATIENT
  Age: 24 Year
  Sex: Male

DRUGS (13)
  1. PULMOZYME [Concomitant]
     Active Substance: DORNASE ALFA
     Indication: ASTHMA
     Dosage: 1 DF, QD
     Route: 055
     Dates: start: 2014
  2. TOBRAMYCIN. [Suspect]
     Active Substance: TOBRAMYCIN
     Indication: ASTHMA
     Dosage: 1 DF, BID
     Route: 055
     Dates: start: 1997
  3. XOLAIR [Suspect]
     Active Substance: OMALIZUMAB
     Indication: ASTHMA
     Dosage: 150 MG, EVERY 4 WEEKS
     Route: 058
     Dates: start: 20180724
  4. VENTOLIN [Concomitant]
     Active Substance: ALBUTEROL SULFATE
     Indication: ASTHMA
     Dosage: 2 DF, PRN (4-6 TIMES A DAY)
     Route: 055
     Dates: start: 1997
  5. XOLAIR [Suspect]
     Active Substance: OMALIZUMAB
     Dosage: 150 MG, EVERY 4 WEEKS
     Route: 058
     Dates: start: 20181003
  6. SYMBICORT [Concomitant]
     Active Substance: BUDESONIDE\FORMOTEROL FUMARATE DIHYDRATE
     Indication: ASTHMA
     Dosage: 2 DF, BID
     Route: 055
     Dates: start: 2016
  7. AZITHROMYCIN ANHYDROUS. [Suspect]
     Active Substance: AZITHROMYCIN ANHYDROUS
     Indication: CYSTIC FIBROSIS
     Dosage: 1 DF, QD
     Route: 048
     Dates: start: 2015
  8. XOLAIR [Suspect]
     Active Substance: OMALIZUMAB
     Dosage: 150 MG, EVERY 4 WEEKS
     Route: 058
     Dates: start: 20181126
  9. CREON [Concomitant]
     Active Substance: PANCRELIPASE AMYLASE\PANCRELIPASE LIPASE\PANCRELIPASE PROTEASE
     Indication: CYSTIC FIBROSIS
     Dosage: 1 DF, UNK
     Route: 045
     Dates: start: 2013
  10. XOLAIR [Suspect]
     Active Substance: OMALIZUMAB
     Dosage: 150 MG, EVERY 4 WEEKS
     Route: 058
     Dates: start: 20181126
  11. GABAPENTIN. [Concomitant]
     Active Substance: GABAPENTIN
     Indication: NEURALGIA
     Dosage: 1 DF, TID
     Route: 048
     Dates: start: 2017
  12. IBUPROFEN. [Concomitant]
     Active Substance: IBUPROFEN
     Indication: PAIN
     Dosage: 1 DF, QD
     Route: 048
     Dates: start: 2013
  13. PULMICORT TURBUHALER [Concomitant]
     Active Substance: BUDESONIDE
     Indication: ASTHMA
     Dosage: 2 DF, BID
     Route: 055
     Dates: start: 2013

REACTIONS (4)
  - Nausea [Recovered/Resolved]
  - Malaise [Unknown]
  - Upper respiratory tract infection [Unknown]
  - Asthma [Unknown]

NARRATIVE: CASE EVENT DATE: 201810
